FAERS Safety Report 18309954 (Version 1)
Quarter: 2020Q3

REPORT INFORMATION
  Report Type: Report from Study
  Country: US (occurrence: US)
  Receive Date: 20200924
  Receipt Date: 20200924
  Transmission Date: 20201103
  Serious: Yes (Death)
  Sender: FDA-Public Use
  Company Number: US-EXELIXIS-CABO-20033107

PATIENT
  Sex: Male
  Weight: 63 kg

DRUGS (9)
  1. CABOMETYX [Suspect]
     Active Substance: CABOZANTINIB S-MALATE
     Indication: HEPATOCELLULAR CARCINOMA
     Dosage: 40 MG, QD
     Route: 048
  2. NOVOLIN 70/30 [Concomitant]
     Active Substance: INSULIN HUMAN
  3. DILTIAZEM. [Concomitant]
     Active Substance: DILTIAZEM
  4. ATORVASTATIN CALCIUM. [Concomitant]
     Active Substance: ATORVASTATIN CALCIUM
  5. LEVOTHYROXINE SODIUM. [Concomitant]
     Active Substance: LEVOTHYROXINE SODIUM
  6. ZOLPIDEM TARTRATE. [Concomitant]
     Active Substance: ZOLPIDEM TARTRATE
  7. METOCLOPRAMIDE. [Concomitant]
     Active Substance: METOCLOPRAMIDE
  8. MICARDIS [Concomitant]
     Active Substance: TELMISARTAN
  9. GARLIC. [Concomitant]
     Active Substance: GARLIC

REACTIONS (1)
  - Death [Fatal]
